FAERS Safety Report 9894170 (Version 2)
Quarter: 2014Q1

REPORT INFORMATION
  Report Type: Spontaneous
  Country: BE (occurrence: BE)
  Receive Date: 20140213
  Receipt Date: 20140225
  Transmission Date: 20141002
  Serious: Yes (Other)
  Sender: FDA-Public Use
  Company Number: PHHY2014BE017686

PATIENT
  Age: 73 Year
  Sex: Male

DRUGS (2)
  1. SEEBRI BREEZHALER [Suspect]
     Dosage: UNK UKN, UNK
     Dates: start: 201310
  2. ONBREZ [Concomitant]
     Dosage: UNK UKN, UNK
     Dates: start: 201307

REACTIONS (1)
  - Toxic skin eruption [Not Recovered/Not Resolved]
